FAERS Safety Report 16350140 (Version 1)
Quarter: 2019Q2

REPORT INFORMATION
  Report Type: Report from Study
  Country: MX (occurrence: MX)
  Receive Date: 20190523
  Receipt Date: 20190523
  Transmission Date: 20190711
  Serious: Yes (Death)
  Sender: FDA-Public Use
  Company Number: MX-INCYTE CORPORATION-2019IN004826

PATIENT

DRUGS (1)
  1. JAKAVI [Suspect]
     Active Substance: RUXOLITINIB
     Indication: LEUKAEMIA
     Dosage: UNK
     Route: 048
     Dates: start: 2018, end: 2018

REACTIONS (4)
  - Pneumonia [Fatal]
  - Pulmonary sepsis [Fatal]
  - Product use in unapproved indication [Unknown]
  - Leukaemia [Fatal]
